FAERS Safety Report 7861299-2 (Version None)
Quarter: 2011Q4

REPORT INFORMATION
  Report Type: 
  Country: None (occurrence: None)
  Receive Date: 20111027
  Receipt Date: 20111021
  Transmission Date: 20120403
  Serious: Yes (Hospitalization)
  Sender: FDA-Public Use
  Company Number: PHHY2011FR93509

PATIENT
  Sex: Male
  Weight: 92 kg

DRUGS (5)
  1. ATACAND [Concomitant]
     Dosage: 1 DF, QD
     Route: 048
  2. NICARDIPINE HCL [Concomitant]
     Dosage: 2 DF, QD
     Route: 048
  3. AFINITOR [Suspect]
     Dosage: 2.5 MG, DAILY
  4. AFINITOR [Suspect]
     Indication: RENAL CANCER METASTATIC
     Dosage: 5 MG, DAILY
     Dates: start: 20110311
  5. ALLOPURINOL [Concomitant]
     Dosage: 1 DF, QD
     Route: 048

REACTIONS (2)
  - LUNG DISORDER [None]
  - CHRONIC OBSTRUCTIVE PULMONARY DISEASE [None]
